FAERS Safety Report 8876056 (Version 1)
Quarter: 2012Q4

REPORT INFORMATION
  Report Type: 
  Country: ES (occurrence: ES)
  Receive Date: 20121030
  Receipt Date: 20121030
  Transmission Date: 20130627
  Serious: Yes (Hospitalization, Other)
  Sender: FDA-Public Use
  Company Number: ES-MERCK-1210ESP013187

PATIENT
  Age: 63 Year
  Sex: Female

DRUGS (6)
  1. SINEMET PLUS RETARD 25/100 MG COMPRIMIDOS DE LIBERACI?N RETARDADA [Suspect]
     Indication: PARKINSONISM
     Route: 048
     Dates: start: 20120816
  2. MIRAPEXIN [Suspect]
     Indication: PARKINSONISM
     Route: 048
     Dates: start: 20120816, end: 20120827
  3. ASPIRIN [Concomitant]
     Route: 048
     Dates: start: 20120815
  4. BEMIPARIN SODIUM [Concomitant]
     Indication: THROMBOSIS PROPHYLAXIS
     Route: 058
     Dates: start: 20120815
  5. PRIMPERAN [Concomitant]
     Indication: NAUSEA
     Route: 048
     Dates: start: 20120815
  6. OMEPRAZOLE [Concomitant]
     Indication: PROPHYLAXIS
     Route: 048
     Dates: start: 20120815

REACTIONS (1)
  - Acute psychosis [Recovering/Resolving]
